FAERS Safety Report 13438732 (Version 2)
Quarter: 2020Q3

REPORT INFORMATION
  Report Type: Spontaneous
  Country: FR (occurrence: FR)
  Receive Date: 20170413
  Receipt Date: 20180116
  Transmission Date: 20201105
  Serious: Yes (Hospitalization)
  Sender: FDA-Public Use
  Company Number: FR-MALLINCKRODT-T201701506

PATIENT
  Age: 88 Year
  Sex: Female
  Weight: 54 kg

DRUGS (24)
  1. OFIRMEV [Suspect]
     Active Substance: ACETAMINOPHEN
     Indication: PAIN
     Dosage: 1 G, UNK
     Route: 042
     Dates: start: 20170227, end: 20170227
  2. NEOSYNEPHRINE [Suspect]
     Active Substance: PHENYLEPHRINE HYDROCHLORIDE
     Indication: ANTIBIOTIC PROPHYLAXIS
     Dosage: 1 SINGLE INTAKE (100 MG), UNK
     Route: 047
     Dates: start: 20170228, end: 20170228
  3. SUFENTANIL [Suspect]
     Active Substance: SUFENTANIL
     Indication: ANAESTHESIA
     Dosage: 1 DF (15 ?G), UNK
     Route: 042
     Dates: start: 20170227, end: 20170227
  4. METHYLPREDNISOLONE. [Suspect]
     Active Substance: METHYLPREDNISOLONE
     Indication: VITRECTOMY
     Dosage: 1 SINGLE INTAKE (120 MG), UNK
     Route: 042
     Dates: start: 20170227, end: 20170227
  5. DEXAFREE [Suspect]
     Active Substance: DEXAMETHASONE SODIUM PHOSPHATE
     Indication: VITRECTOMY
     Dosage: 1 SINGLE INTAKE (1MG/ML), UNK
     Route: 047
     Dates: start: 20170228, end: 20170228
  6. VESICARE [Concomitant]
     Active Substance: SOLIFENACIN SUCCINATE
     Indication: PRODUCT USED FOR UNKNOWN INDICATION
  7. STERDEX [Suspect]
     Active Substance: DEXAMETHASONE\OXYTETRACYCLINE
     Indication: PROPHYLAXIS
     Dosage: UNK
     Route: 047
     Dates: start: 20170227
  8. COMBIGAN [Suspect]
     Active Substance: BRIMONIDINE TARTRATE\TIMOLOL MALEATE
     Indication: VITRECTOMY
     Dosage: 1 DF, UNK
     Route: 047
     Dates: start: 20170228, end: 20170309
  9. CORTANCYL [Suspect]
     Active Substance: PREDNISONE
     Indication: VITRECTOMY
     Dosage: UNK
     Route: 048
     Dates: start: 20170228
  10. PROPOFOL. [Suspect]
     Active Substance: PROPOFOL
     Indication: ANAESTHESIA
     Dosage: 150 MG, UNK
     Route: 042
     Dates: start: 20170227, end: 20170227
  11. NEFOPAM HYDROCHLORIDE [Suspect]
     Active Substance: NEFOPAM HYDROCHLORIDE
     Indication: PAIN
     Dosage: 1 DF (20 MG), UNK
     Route: 042
     Dates: start: 20170227, end: 20170227
  12. ATARAX [Concomitant]
     Active Substance: HYDROXYZINE HYDROCHLORIDE
     Indication: PRODUCT USED FOR UNKNOWN INDICATION
     Dosage: 25 MG
     Route: 065
     Dates: start: 20170227, end: 20170227
  13. OFIRMEV [Suspect]
     Active Substance: ACETAMINOPHEN
     Indication: PROPHYLAXIS
  14. AZYTER [Suspect]
     Active Substance: AZITHROMYCIN ANHYDROUS
     Indication: PROPHYLAXIS
     Dosage: 1 SINGLE INTAKE (15 MG/G), UNK
     Route: 047
     Dates: start: 20170228, end: 20170228
  15. TOPALGIC (TRAMADOL HYDROCHLORIDE) [Suspect]
     Active Substance: TRAMADOL HYDROCHLORIDE
     Indication: PAIN
     Dosage: 1 DF (50 MG), QD
     Route: 048
     Dates: start: 20170228, end: 20170228
  16. DESFLURANE. [Suspect]
     Active Substance: DESFLURANE
     Indication: ANAESTHESIA
     Dosage: UNK
     Route: 050
     Dates: start: 20170227
  17. EPHEDRINE. [Suspect]
     Active Substance: EPHEDRINE
     Indication: VITRECTOMY
     Dosage: 1 DF (6 MG), UNK
     Route: 042
     Dates: start: 20170227, end: 20170227
  18. MYDRIATICUM [Suspect]
     Active Substance: TROPICAMIDE
     Indication: PRODUCT USED FOR UNKNOWN INDICATION
     Dosage: 1 SINGLE INTAKE (0.5%), UNK
     Route: 047
     Dates: start: 20170228, end: 20170228
  19. TOBRADEX [Suspect]
     Active Substance: DEXAMETHASONE\TOBRAMYCIN
     Indication: PROPHYLAXIS
     Dosage: 1 DF, QD
     Route: 047
     Dates: start: 20170228, end: 20170309
  20. OFLOCET [Suspect]
     Active Substance: OFLOXACIN
     Indication: PROPHYLAXIS
     Dosage: 1 DF (200 MG), UNK
     Route: 048
     Dates: start: 20170227, end: 20170227
  21. MICARDIS [Concomitant]
     Active Substance: TELMISARTAN
     Indication: PRODUCT USED FOR UNKNOWN INDICATION
  22. TRACRIUM [Suspect]
     Active Substance: ATRACURIUM BESYLATE
     Indication: ANAESTHESIA
     Dosage: 20 MG, UNK
     Route: 042
     Dates: start: 20170227, end: 20170227
  23. NEOSYNEPHRINE [Suspect]
     Active Substance: PHENYLEPHRINE HYDROCHLORIDE
     Indication: VITRECTOMY
     Dosage: 1 DF (100 MG), UNK
     Route: 042
     Dates: start: 20170227, end: 20170227
  24. RIFAMYCINE CHIBRET [Suspect]
     Active Substance: RIFAMYCIN
     Indication: ANTIBIOTIC PROPHYLAXIS
     Dosage: UNK, TID
     Route: 047
     Dates: start: 20170228, end: 20170306

REACTIONS (1)
  - Drug reaction with eosinophilia and systemic symptoms [Recovering/Resolving]

NARRATIVE: CASE EVENT DATE: 20170306
